FAERS Safety Report 9629673 (Version 1)
Quarter: 2013Q4

REPORT INFORMATION
  Report Type: Spontaneous
  Country: AT (occurrence: AT)
  Receive Date: 20131017
  Receipt Date: 20131017
  Transmission Date: 20140711
  Serious: Yes (Life-Threatening, Hospitalization)
  Sender: FDA-Public Use
  Company Number: AT-ASTRAZENECA-2013SE75770

PATIENT
  Age: 65 Year
  Sex: Male
  Weight: 65 kg

DRUGS (15)
  1. SEROQUEL [Suspect]
     Route: 048
     Dates: start: 201304
  2. CYMBALTA [Concomitant]
     Dosage: 120
     Dates: start: 201304, end: 20130709
  3. MIRTAZAPIN [Concomitant]
     Dosage: 45
     Dates: start: 201304, end: 201306
  4. MIRTAZAPIN [Concomitant]
     Dosage: 90
     Dates: start: 201306
  5. GLADEM [Concomitant]
     Dosage: 50
     Dates: start: 201304, end: 201306
  6. GLADEM [Concomitant]
     Dosage: 100
     Dates: start: 201306
  7. QUILONORM [Concomitant]
     Dosage: 675
     Dates: start: 20130704, end: 20130708
  8. QUILONORM [Concomitant]
     Dosage: 900
     Dates: start: 20130709, end: 20130709
  9. QUILONORM [Concomitant]
     Dosage: 1125
     Dates: start: 20130710
  10. RIVOTRIL [Concomitant]
     Dosage: 0.5
     Dates: start: 201304, end: 20130702
  11. RIVOTRIL [Concomitant]
     Dosage: 0.25
     Dates: start: 20130703, end: 20130707
  12. RIVOTRIL [Concomitant]
     Dosage: 0.75
     Dates: start: 20130708, end: 20130708
  13. RIVOTRIL [Concomitant]
     Dosage: 2
     Dates: start: 20130709
  14. EUTHYROX [Concomitant]
  15. ALNA RETARD [Concomitant]
     Dosage: 0.4
     Dates: start: 201304

REACTIONS (2)
  - Pulmonary embolism [Recovered/Resolved]
  - Right ventricular heave [Unknown]
